FAERS Safety Report 19511116 (Version 1)
Quarter: 2021Q3

REPORT INFORMATION
  Report Type: Spontaneous
  Country: CN (occurrence: CN)
  Receive Date: 20210709
  Receipt Date: 20210709
  Transmission Date: 20211014
  Serious: Yes (Other)
  Sender: FDA-Public Use
  Company Number: CN-ASTRAZENECA-2021A595689

PATIENT
  Age: 22656 Day
  Sex: Female
  Weight: 47 kg

DRUGS (6)
  1. THROMBOPOIETIN [Concomitant]
     Active Substance: THROMBOPOIETIN
     Dosage: 15000U ONCE, SUBCUTANEOUS INJECTED.
     Route: 058
     Dates: start: 20210525, end: 20210528
  2. DURVALUMAB. [Suspect]
     Active Substance: DURVALUMAB
     Indication: HEPATIC CANCER
     Route: 042
     Dates: start: 20210519, end: 20210519
  3. THROMBOPOIETIN [Concomitant]
     Active Substance: THROMBOPOIETIN
     Dosage: 15000U QD,
     Route: 058
     Dates: start: 20210523
  4. THROMBOPOIETIN [Concomitant]
     Active Substance: THROMBOPOIETIN
     Dosage: 15000U ONCE, SUBCUTANEOUS INJECTED.
     Route: 058
     Dates: start: 20210524
  5. THROMBOPOIETIN [Concomitant]
     Active Substance: THROMBOPOIETIN
     Dosage: 15000U / 1ML X 14 VIALS
     Route: 058
     Dates: start: 20210528, end: 20210531
  6. GEMCITABINE HYDROCHLORIDE. [Suspect]
     Active Substance: GEMCITABINE HYDROCHLORIDE
     Route: 041
     Dates: start: 20210519, end: 20210519

REACTIONS (1)
  - Myelosuppression [Recovering/Resolving]

NARRATIVE: CASE EVENT DATE: 20210528
